FAERS Safety Report 6874478-8 (Version None)
Quarter: 2010Q3

REPORT INFORMATION
  Report Type: 
  Country: None (occurrence: None)
  Receive Date: 20100723
  Receipt Date: 20100723
  Transmission Date: 20110219
  Serious: Yes (Life-Threatening)
  Sender: FDA-Public Use
  Company Number: None

PATIENT
  Age: 51 Year
  Sex: Female
  Weight: 65 kg

DRUGS (2)
  1. CEFAZOLIN [Suspect]
     Indication: ANTIBIOTIC PROPHYLAXIS
     Dosage: 1GM ONCE PRE-OP IV BOLUS
     Route: 040
     Dates: start: 20100719, end: 20100719
  2. CEFAZOLIN [Suspect]
     Indication: PREOPERATIVE CARE
     Dosage: 1GM ONCE PRE-OP IV BOLUS
     Route: 040
     Dates: start: 20100719, end: 20100719

REACTIONS (4)
  - HYPOTENSION [None]
  - MECHANICAL VENTILATION COMPLICATION [None]
  - TACHYCARDIA [None]
  - URTICARIA [None]
